FAERS Safety Report 8177570-3 (Version None)
Quarter: 2012Q1

REPORT INFORMATION
  Report Type: 
  Country: None (occurrence: None)
  Receive Date: 20120301
  Receipt Date: 20120220
  Transmission Date: 20120608
  Serious: Yes (Other)
  Sender: FDA-Public Use
  Company Number: PHHY2012AU015534

PATIENT
  Sex: Male
  Weight: 69 kg

DRUGS (10)
  1. MULTI-VITAMIN [Concomitant]
  2. ATORVASTATIN [Concomitant]
     Dosage: 40 MG, AT NIGHT
  3. CARBIDOPA + LEVODOPA [Concomitant]
     Dosage: 3.5 DF, (1.5 DF IN MORNING, 1 AT MIDDAY AND 1 AT NIGHT)
  4. METOPROLOL TARTRATE [Suspect]
  5. CITALOPRAM HYDROBROMIDE [Concomitant]
     Dosage: 10 MG, IN THE MORNING
  6. OLANZAPINE [Concomitant]
     Dosage: 5 MG, AT NIGHT
  7. DOMPERIDONE [Concomitant]
     Dosage: 10 MG, UNK
     Route: 062
  8. SYMMETREL [Suspect]
     Dosage: 100 MG, IN THE MORNING
  9. BENZHEXOL [Concomitant]
     Dosage: 1 MG, UNK
     Route: 062
  10. OMEPRAZOLE [Concomitant]
     Dosage: 20 MG, AT NIGHT

REACTIONS (7)
  - VENTRICULAR HYPERTROPHY [None]
  - DIASTOLIC DYSFUNCTION [None]
  - EXTRASYSTOLES [None]
  - HEART VALVE INCOMPETENCE [None]
  - EJECTION FRACTION DECREASED [None]
  - DILATATION ATRIAL [None]
  - PULMONARY VALVE INCOMPETENCE [None]
